FAERS Safety Report 25400674 (Version 1)
Quarter: 2025Q2

REPORT INFORMATION
  Report Type: Spontaneous
  Country: US (occurrence: US)
  Receive Date: 20250605
  Receipt Date: 20250605
  Transmission Date: 20250716
  Serious: No
  Sender: CHATTEM
  Company Number: US-OPELLA-2025OHG017393

PATIENT

DRUGS (2)
  1. ALLEGRA [Suspect]
     Active Substance: FEXOFENADINE HYDROCHLORIDE
     Indication: Hypersensitivity
  2. SELDANE [Suspect]
     Active Substance: TERFENADINE
     Indication: Hypersensitivity

REACTIONS (2)
  - Cardiac disorder [Unknown]
  - Drug ineffective [Unknown]
